FAERS Safety Report 6745501-6 (Version None)
Quarter: 2010Q2

REPORT INFORMATION
  Report Type: 
  Country: None (occurrence: None)
  Receive Date: 20100528
  Receipt Date: 20100520
  Transmission Date: 20101027
  Serious: Yes (Hospitalization, Other)
  Sender: FDA-Public Use
  Company Number: TR-JNJFOC-20100405224

PATIENT
  Age: 57 Year
  Sex: Male

DRUGS (20)
  1. DURAGESIC-100 [Suspect]
     Indication: CANCER PAIN
     Route: 062
  2. DURAGESIC-100 [Suspect]
     Route: 062
  3. DURAGESIC-100 [Suspect]
     Route: 062
  4. DURAGESIC-100 [Suspect]
     Route: 062
  5. LACTULOSE [Concomitant]
     Route: 065
  6. ASIST [Concomitant]
     Route: 065
  7. AMOXICILLIN [Concomitant]
     Route: 042
  8. AVIL [Concomitant]
     Dosage: 45.5 MG/2 ML VIAL
     Route: 065
  9. PAROL [Concomitant]
     Route: 065
  10. DEXAMETHASONE [Concomitant]
     Route: 065
  11. DIKLORON [Concomitant]
     Dosage: 75 MG/3 ML
     Route: 030
  12. DICLOFENAC [Concomitant]
     Route: 065
  13. SUPRAFEN [Concomitant]
     Route: 065
  14. VOLTAREN [Concomitant]
  15. LANSOPRAZOL [Concomitant]
  16. QUETIAPINE [Concomitant]
  17. ISOTONIC SOLUTIONS [Concomitant]
     Route: 065
  18. POTASSIUM BICARBONATE W/POTASSIUM CITRATE [Concomitant]
     Route: 065
  19. AMOXICILLIN AND CLAVULANATE POTASSIUM [Concomitant]
     Route: 065
  20. LYRICA [Concomitant]

REACTIONS (1)
  - DELIRIUM [None]
